FAERS Safety Report 18125296 (Version 1)
Quarter: 2020Q3

REPORT INFORMATION
  Report Type: Spontaneous
  Country: BR (occurrence: BR)
  Receive Date: 20200807
  Receipt Date: 20200807
  Transmission Date: 20201103
  Serious: Yes (Other)
  Sender: FDA-Public Use
  Company Number: BR-SHIRE-BR202025451

PATIENT

DRUGS (2)
  1. ETHAMBUTOL DIHYDROCHLORIDE;ISONIAZID;PYRAZINAMIDE;RIFAMPICIN [Suspect]
     Active Substance: ETHAMBUTOL HYDROCHLORIDE\ISONIAZID\PYRAZINAMIDE\RIFAMPIN
     Indication: TUBERCULOSIS
     Dosage: 3 DOSAGE FORM, 1X/DAY:QD
     Route: 048
     Dates: start: 202005
  2. MESACOL MMX [Suspect]
     Active Substance: MESALAMINE
     Indication: CROHN^S DISEASE
     Dosage: 2400 MILLIGRAM, 2X/DAY:BID
     Route: 048
     Dates: start: 202004

REACTIONS (14)
  - Headache [Unknown]
  - Asthenia [Unknown]
  - Tuberculosis [Unknown]
  - Fatigue [Unknown]
  - Product use in unapproved indication [Unknown]
  - Wrong schedule [Unknown]
  - Arthralgia [Unknown]
  - Somnolence [Unknown]
  - Hallucination [Unknown]
  - Nausea [Unknown]
  - Hyperhidrosis [Unknown]
  - Dyspnoea [Unknown]
  - Cough [Unknown]
  - Abdominal discomfort [Unknown]

NARRATIVE: CASE EVENT DATE: 202005
